FAERS Safety Report 6326473-5 (Version None)
Quarter: 2009Q3

REPORT INFORMATION
  Report Type: 
  Country: None (occurrence: None)
  Receive Date: 20090821
  Receipt Date: 20090804
  Transmission Date: 20100115
  Serious: Yes (Other)
  Sender: FDA-Public Use
  Company Number: B0588751A

PATIENT
  Age: 29 Year
  Sex: Female

DRUGS (8)
  1. METHADONE HCL [Suspect]
     Indication: DRUG USE FOR UNKNOWN INDICATION
  2. AMOXICILLIN TRIHYDRATE [Suspect]
     Indication: DRUG USE FOR UNKNOWN INDICATION
  3. NIFEDIPINE [Suspect]
     Indication: DRUG USE FOR UNKNOWN INDICATION
  4. TAMOXIFEN (FORMULATION UNKNOWN) (TAMOXIFEN) [Suspect]
     Indication: DRUG USE FOR UNKNOWN INDICATION
  5. TRASTUZUMAB (FORMULATION UNKNOWN) (TRASTUZUMAB) [Suspect]
     Indication: DRUG USE FOR UNKNOWN INDICATION
  6. DOXORUBICIN HCL [Suspect]
     Indication: DRUG USE FOR UNKNOWN INDICATION
  7. CYCLOPHOSPHAMIDE [Suspect]
     Indication: DRUG USE FOR UNKNOWN INDICATION
  8. STEROID (FORMULATION UNKNOWN) (STEROID) [Suspect]

REACTIONS (5)
  - CAESAREAN SECTION [None]
  - DRUG EXPOSURE DURING PREGNANCY [None]
  - OLIGOHYDRAMNIOS [None]
  - PREGNANCY [None]
  - PREMATURE RUPTURE OF MEMBRANES [None]
